FAERS Safety Report 5400548-7 (Version None)
Quarter: 2007Q3

REPORT INFORMATION
  Report Type: 
  Country: None (occurrence: None)
  Receive Date: 20070730
  Receipt Date: 20070719
  Transmission Date: 20080115
  Serious: Yes (Hospitalization)
  Sender: FDA-Public Use
  Company Number: JP-ASTRAZENECA-2007AP04018

PATIENT
  Age: 82 Year
  Sex: Male
  Weight: 60 kg

DRUGS (8)
  1. MEROPENEM [Suspect]
     Indication: INFECTION
     Route: 041
     Dates: start: 20070510, end: 20070513
  2. OMEPRAZOLE [Concomitant]
     Indication: GASTRIC ULCER
     Route: 041
     Dates: start: 20070506, end: 20070508
  3. FRANDOL [Concomitant]
     Indication: ANGINA PECTORIS
     Route: 062
     Dates: start: 20070506, end: 20070508
  4. FRANDOL [Concomitant]
     Route: 048
     Dates: start: 20070508
  5. PHYSIO 35 [Concomitant]
     Indication: SUPPLEMENTATION THERAPY
     Route: 041
     Dates: start: 20070508, end: 20070512
  6. VASOLAN [Concomitant]
     Indication: ATRIAL FIBRILLATION
     Route: 048
     Dates: start: 20070508
  7. LANIRAPID [Concomitant]
     Indication: ATRIAL FIBRILLATION
     Route: 048
     Dates: start: 20070508
  8. RABEPRAZOLE SODIUM [Concomitant]
     Indication: GASTRIC ULCER
     Route: 048
     Dates: start: 20070508

REACTIONS (1)
  - ARTHRITIS [None]
